FAERS Safety Report 5682692-2 (Version None)
Quarter: 2008Q1

REPORT INFORMATION
  Report Type: 
  Country: None (occurrence: None)
  Receive Date: 20080327
  Receipt Date: 20080317
  Transmission Date: 20080703
  Serious: Yes (Hospitalization, Other)
  Sender: FDA-Public Use
  Company Number: US-AMGEN-QUU266383

PATIENT
  Sex: Female

DRUGS (11)
  1. ENBREL [Suspect]
     Indication: RHEUMATOID ARTHRITIS
     Route: 058
     Dates: start: 20050401
  2. ZOLOFT [Concomitant]
     Dates: start: 20040101
  3. NEURONTIN [Concomitant]
     Dates: start: 20040101
  4. CELEBREX [Concomitant]
  5. OXYCONTIN [Concomitant]
  6. ROXICODONE [Concomitant]
  7. REMERON [Concomitant]
  8. VITAMINS NOS [Concomitant]
  9. CALCIUM [Concomitant]
  10. STOOL SOFTENER [Concomitant]
  11. ALBUTEROL [Concomitant]
     Route: 055

REACTIONS (13)
  - BUNION [None]
  - FATIGUE [None]
  - INJECTION SITE BRUISING [None]
  - INJECTION SITE ERYTHEMA [None]
  - INJECTION SITE HAEMORRHAGE [None]
  - INJECTION SITE IRRITATION [None]
  - INJECTION SITE PAIN [None]
  - INJECTION SITE SWELLING [None]
  - MASTECTOMY [None]
  - RHEUMATOID ARTHRITIS [None]
  - SLEEP DISORDER [None]
  - STAPHYLOCOCCAL INFECTION [None]
  - WOUND COMPLICATION [None]
